FAERS Safety Report 19163088 (Version 1)
Quarter: 2021Q2

REPORT INFORMATION
  Report Type: Spontaneous
  Country: CA (occurrence: CA)
  Receive Date: 20210421
  Receipt Date: 20210421
  Transmission Date: 20210717
  Serious: Yes (Hospitalization)
  Sender: FDA-Public Use
  Company Number: CA-EMCURE PHARMACEUTICALS LTD-2021-EPL-001288

PATIENT
  Age: 68 Year
  Sex: Male

DRUGS (12)
  1. RISPERIDONE. [Suspect]
     Active Substance: RISPERIDONE
     Indication: PRODUCT USED FOR UNKNOWN INDICATION
     Dosage: 2 MILLIGRAM, 1 EVERY 1 DAYS
  2. LOXAPINE. [Concomitant]
     Active Substance: LOXAPINE
  3. SYMBICORT [Concomitant]
     Active Substance: BUDESONIDE\FORMOTEROL FUMARATE DIHYDRATE
  4. TYLENOL [Concomitant]
     Active Substance: ACETAMINOPHEN
  5. EPIVAL [Concomitant]
     Active Substance: DIVALPROEX SODIUM
  6. RISPERIDONE. [Suspect]
     Active Substance: RISPERIDONE
     Dosage: 3.5 MILLIGRAM, 1 EVERY 1 DAYS
  7. RISPERIDONE. [Suspect]
     Active Substance: RISPERIDONE
     Dosage: 3 MILLIGRAM, 1 EVERY 1 DAYS
  8. ATIVAN [Concomitant]
     Active Substance: LORAZEPAM
  9. HALDOL [Concomitant]
     Active Substance: HALOPERIDOL
  10. BENADRY [Concomitant]
  11. OLANZAPINE. [Concomitant]
     Active Substance: OLANZAPINE
  12. QUETIAPINE. [Concomitant]
     Active Substance: QUETIAPINE

REACTIONS (4)
  - Lipase increased [Unknown]
  - Amylase increased [Unknown]
  - Akathisia [Unknown]
  - Alanine aminotransferase increased [Unknown]
